APPROVED DRUG PRODUCT: LOVASTATIN
Active Ingredient: LOVASTATIN
Strength: 10MG
Dosage Form/Route: TABLET;ORAL
Application: A075300 | Product #001 | TE Code: AB
Applicant: CHARTWELL RX SCIENCES LLC
Approved: Dec 17, 2001 | RLD: No | RS: No | Type: RX